FAERS Safety Report 12403274 (Version 2)
Quarter: 2016Q2

REPORT INFORMATION
  Report Type: Spontaneous
  Country: US (occurrence: US)
  Receive Date: 20160525
  Receipt Date: 20160606
  Transmission Date: 20160815
  Serious: No
  Sender: FDA-Public Use
  Company Number: US-ELI_LILLY_AND_COMPANY-US201605001054

PATIENT
  Sex: Male

DRUGS (3)
  1. MULTAQ [Concomitant]
     Active Substance: DRONEDARONE
  2. ADCIRCA [Suspect]
     Active Substance: TADALAFIL
     Indication: PULMONARY ARTERIAL HYPERTENSION
     Dosage: 40 MG, QD
     Route: 065
     Dates: end: 201603
  3. OXYGEN. [Concomitant]
     Active Substance: OXYGEN
     Dosage: 4 L, UNK

REACTIONS (1)
  - Epistaxis [Unknown]
